FAERS Safety Report 11865749 (Version 2)
Quarter: 2016Q1

REPORT INFORMATION
  Report Type: Spontaneous
  Country: KR (occurrence: KR)
  Receive Date: 20151223
  Receipt Date: 20160105
  Transmission Date: 20160526
  Serious: Yes (Other)
  Sender: FDA-Public Use
  Company Number: KR-PFIZER INC-2015460791

PATIENT
  Age: 47 Year
  Sex: Female

DRUGS (1)
  1. DUAVIVE [Suspect]
     Active Substance: BAZEDOXIFENE ACETATE\ESTROGENS, CONJUGATED
     Dosage: UNK
     Route: 048
     Dates: start: 201509, end: 201512

REACTIONS (3)
  - Uterine haemorrhage [Recovered/Resolved]
  - Anaemia [Recovered/Resolved]
  - Uterine leiomyoma [Recovered/Resolved]

NARRATIVE: CASE EVENT DATE: 201511
